FAERS Safety Report 8704875 (Version 3)
Quarter: 2012Q4

REPORT INFORMATION
  Report Type: Report from Study
  Country: FR (occurrence: FR)
  Receive Date: 20120803
  Receipt Date: 20121005
  Transmission Date: 20130627
  Serious: Yes (Hospitalization)
  Sender: FDA-Public Use
  Company Number: FR-PFIZER INC-2012177278

PATIENT
  Age: 70 Year
  Sex: Male
  Weight: 70 kg

DRUGS (10)
  1. TEMSIROLIMUS [Suspect]
     Indication: MANTLE CELL LYMPHOMA
     Dosage: 50 mg, cyclic
     Dates: start: 20120629, end: 20120706
  2. ARACYTINE [Concomitant]
     Dosage: 2g/m2
     Route: 042
     Dates: start: 20120630, end: 20120701
  3. RITUXIMAB [Concomitant]
     Dosage: 375 mg/m2, cyclic
     Route: 042
     Dates: start: 20120629
  4. DEXAMETHASONE [Concomitant]
     Dosage: 40 mg, 1x/day
     Route: 042
     Dates: start: 20120629, end: 20120702
  5. FASTURTEC [Concomitant]
     Indication: PROPHYLAXIS
     Dosage: UNK
     Dates: start: 20120629
  6. PARACETAMOL [Concomitant]
     Indication: PREMEDICATION
  7. POLARAMINE [Concomitant]
     Indication: PREMEDICATION
  8. GRANOCYTE [Concomitant]
     Indication: PROPHYLAXIS
     Dosage: UNK
     Dates: start: 20120703, end: 20120708
  9. BACTRIM FORTE [Concomitant]
     Indication: INFECTION PROPHYLAXIS
     Dosage: 3 DF, weekly
     Route: 048
  10. ZELITREX [Concomitant]
     Indication: INFECTION PROPHYLAXIS
     Dosage: 500 mg, 2x/day

REACTIONS (3)
  - Febrile bone marrow aplasia [Recovered/Resolved]
  - Thrombocytopenia [Recovered/Resolved]
  - Confusional state [Recovered/Resolved]
